FAERS Safety Report 17670228 (Version 1)
Quarter: 2020Q2

REPORT INFORMATION
  Report Type: Spontaneous
  Country: US (occurrence: US)
  Receive Date: 20200414
  Receipt Date: 20200414
  Transmission Date: 20200713
  Serious: No
  Sender: FDA-Public Use
  Company Number: None

PATIENT
  Sex: Male

DRUGS (1)
  1. AMBRISENTAN 10MG ACTAVIS PHARMA [Suspect]
     Active Substance: AMBRISENTAN
     Indication: PULMONARY ARTERIAL HYPERTENSION
     Route: 058
     Dates: start: 20190911

REACTIONS (7)
  - Pain in jaw [None]
  - Nausea [None]
  - Therapy interrupted [None]
  - Pain [None]
  - Malaise [None]
  - Headache [None]
  - Pain in extremity [None]
